FAERS Safety Report 8182163-8 (Version None)
Quarter: 2012Q1

REPORT INFORMATION
  Report Type: 
  Country: None (occurrence: None)
  Receive Date: 20120302
  Receipt Date: 20120222
  Transmission Date: 20120608
  Serious: No
  Sender: FDA-Public Use
  Company Number: US-B.I. PHARMACEUTICALS,INC./RIDGEFIELD-2012-BP-03487BP

PATIENT
  Age: 62 Year
  Sex: Female

DRUGS (1)
  1. MICARDIS [Suspect]
     Route: 048

REACTIONS (5)
  - VOMITING [None]
  - NAUSEA [None]
  - THROAT IRRITATION [None]
  - FOREIGN BODY [None]
  - OROPHARYNGEAL PAIN [None]
